FAERS Safety Report 7687569-9 (Version None)
Quarter: 2011Q3

REPORT INFORMATION
  Report Type: 
  Country: None (occurrence: None)
  Receive Date: 20110811
  Receipt Date: 20110729
  Transmission Date: 20111222
  Serious: Yes (Other)
  Sender: FDA-Public Use
  Company Number: MSTR-NO-1108S-0198

PATIENT
  Age: 75 Year
  Sex: Male
  Weight: 48 kg

DRUGS (3)
  1. METASTRON [Suspect]
     Indication: METASTATIC PAIN
     Dosage: 96 MBQ, SINGLE DOSE, INTRAVENOUS ; 84 MGQ, SINGLE DOSE, INTRAVENOUS
     Route: 042
     Dates: start: 20090703, end: 20090703
  2. METASTRON [Suspect]
     Indication: METASTATIC PAIN
     Dosage: 96 MBQ, SINGLE DOSE, INTRAVENOUS ; 84 MGQ, SINGLE DOSE, INTRAVENOUS
     Route: 042
     Dates: start: 20091002, end: 20091002
  3. OXYCODONE HCL [Concomitant]

REACTIONS (3)
  - NEOPLASM PROGRESSION [None]
  - PROSTATE CANCER METASTATIC [None]
  - ANAEMIA [None]
